FAERS Safety Report 5232169-3 (Version None)
Quarter: 2007Q1

REPORT INFORMATION
  Report Type: 
  Country: None (occurrence: None)
  Receive Date: 20061205
  Receipt Date: 20060818
  Transmission Date: 20070707
  Serious: No
  Sender: FDA-Public Use
  Company Number: PHEH2006US10715

PATIENT
  Sex: Female

DRUGS (2)
  1. EXJADE [Suspect]
     Indication: THALASSAEMIA
     Dosage: 20 MG/KG,QD,ORAL
     Route: 048
     Dates: start: 20060520
  2. DESFERAL [Suspect]

REACTIONS (1)
  - HYPOAESTHESIA [None]
